FAERS Safety Report 11492341 (Version 1)
Quarter: 2015Q3

REPORT INFORMATION
  Report Type: Spontaneous
  Country: US (occurrence: None)
  Receive Date: 20150910
  Receipt Date: 20150910
  Transmission Date: 20151125
  Serious: Yes (Death, Hospitalization)
  Sender: FDA-Public Use
  Company Number: None

PATIENT
  Age: 36 Year
  Sex: Female
  Weight: 80 kg

DRUGS (7)
  1. THIOGUANINE (6-TG) [Suspect]
     Active Substance: THIOGUANINE
     Dates: end: 20130119
  2. METHOTREXATE [Suspect]
     Active Substance: METHOTREXATE
     Dates: end: 20130107
  3. VINCRISTINE SULFATE. [Suspect]
     Active Substance: VINCRISTINE SULFATE
     Dates: end: 20121210
  4. CYCLOPHOSPHAMIDE. [Suspect]
     Active Substance: CYCLOPHOSPHAMIDE
     Dates: end: 20130107
  5. DOXORUBICIN HYDROCHLORIDE. [Suspect]
     Active Substance: DOXORUBICIN HYDROCHLORIDE
     Dates: end: 20121210
  6. CYTARABINE. [Suspect]
     Active Substance: CYTARABINE
     Dates: end: 20130117
  7. DEXAMETHASONE. [Suspect]
     Active Substance: DEXAMETHASONE
     Dates: end: 20121216

REACTIONS (6)
  - Blood culture positive [None]
  - Hyperhidrosis [None]
  - Headache [None]
  - Chills [None]
  - Bacterial infection [None]
  - Pyrexia [None]

NARRATIVE: CASE EVENT DATE: 20130119
